FAERS Safety Report 6410721-7 (Version None)
Quarter: 2009Q4

REPORT INFORMATION
  Report Type: 
  Country: None (occurrence: None)
  Receive Date: 20091020
  Receipt Date: 20091020
  Transmission Date: 20100525
  Serious: No
  Sender: FDA-Public Use
  Company Number: None

PATIENT
  Age: 16 Year
  Sex: Female

DRUGS (2)
  1. NICOTINAMIDE [Suspect]
     Dates: start: 20070807, end: 20070907
  2. MINOCYCLINE [Suspect]
     Dosage: 100 MG BID
     Dates: start: 20070717, end: 20071110

REACTIONS (5)
  - ARTHRALGIA [None]
  - CHRONIC HEPATITIS [None]
  - HEPATIC FIBROSIS [None]
  - LIVER INJURY [None]
  - REFUSAL OF TREATMENT BY PATIENT [None]
